FAERS Safety Report 5755907-X (Version None)
Quarter: 2008Q2

REPORT INFORMATION
  Report Type: 
  Country: None (occurrence: None)
  Receive Date: 20080602
  Receipt Date: 20080520
  Transmission Date: 20081010
  Serious: Yes (Other)
  Sender: FDA-Public Use
  Company Number: US-ELI_LILLY_AND_COMPANY-US200803003177

PATIENT
  Sex: Female

DRUGS (11)
  1. CYMBALTA [Suspect]
     Indication: DEPRESSION
     Dosage: 30 MG, UNK
     Dates: start: 20080226, end: 20080227
  2. ATENOLOL [Concomitant]
     Indication: HYPERTENSION
     Dosage: 50 MG, EACH MORNING
     Dates: start: 20040101
  3. ATENOLOL [Concomitant]
     Dosage: 25 MG, EACH EVENING
     Dates: start: 20040101
  4. HYDROCHLOROTHIAZIDE [Concomitant]
     Indication: HYPERTENSION
  5. NORVASC [Concomitant]
     Indication: HYPERTENSION
     Dosage: 10 MG, 2/D
     Dates: start: 20060101
  6. OXYCODONE HYDROCHLORIDE W/PARACETAMOL [Concomitant]
     Indication: PAIN
     Dosage: UNK, DAILY (1/D)
     Dates: start: 20070801
  7. HYDROCODONE BITARTRATE AND ACETAMINOPHEN [Concomitant]
     Indication: PAIN
     Dosage: 2 D/F, DAILY (1/D)
     Dates: start: 20040101
  8. MORPHINE [Concomitant]
     Indication: PAIN
     Dosage: 30 MG, 2/D
     Dates: start: 20080202
  9. ZOLPIDEM [Concomitant]
     Indication: SLEEP DISORDER
     Dosage: 5 MG, EACH EVENING
     Dates: start: 20060101
  10. GABAPENTIN [Concomitant]
     Indication: NEUROPATHY PERIPHERAL
     Dosage: 300 MG, OTHER
     Dates: start: 20050101, end: 20080307
  11. CARISOPRODOL [Concomitant]
     Indication: MUSCLE RELAXANT THERAPY
     Dosage: 350 MG, EACH EVENING
     Dates: start: 20040101

REACTIONS (5)
  - ABDOMINAL PAIN UPPER [None]
  - BURNING SENSATION [None]
  - MUCOUS MEMBRANE DISORDER [None]
  - PAIN [None]
  - STEVENS-JOHNSON SYNDROME [None]
